FAERS Safety Report 6381403-5 (Version None)
Quarter: 2009Q3

REPORT INFORMATION
  Report Type: 
  Country: None (occurrence: None)
  Receive Date: 20090929
  Receipt Date: 20090923
  Transmission Date: 20100115
  Serious: Yes (Hospitalization)
  Sender: FDA-Public Use
  Company Number: US-GENENTECH-105325

PATIENT
  Sex: Female

DRUGS (10)
  1. TRASTUZUMAB [Suspect]
     Indication: BREAST CANCER
     Dosage: 310 MG, UNK
     Route: 042
     Dates: start: 20021203, end: 20021203
  2. DOCETAXEL [Suspect]
     Indication: BREAST CANCER
     Dosage: 130 MG, Q3W
     Route: 042
     Dates: start: 20021204, end: 20021204
  3. CARBOPLATIN [Suspect]
     Indication: BREAST CANCER
     Dosage: 810 MG, Q3W
     Route: 042
     Dates: start: 20021204, end: 20021204
  4. DEXACORT [Suspect]
     Indication: DRUG USE FOR UNKNOWN INDICATION
     Dosage: 20 MG, UNK
     Route: 042
     Dates: start: 20021204, end: 20021204
  5. DEXAMETHASONE 4MG TAB [Suspect]
     Indication: DRUG USE FOR UNKNOWN INDICATION
     Dosage: 8 MG, UNK
     Route: 048
  6. DEXAMETHASONE 4MG TAB [Suspect]
     Dosage: 16 MG, UNK
     Route: 048
  7. GRANISETRON HCL [Concomitant]
     Indication: PREMEDICATION
     Dosage: 6 MG, UNK
     Route: 042
     Dates: start: 20021204, end: 20021204
  8. DEXAMETHASONE 4MG TAB [Concomitant]
     Indication: PREMEDICATION
     Dosage: 24 MG, UNK
     Route: 042
     Dates: start: 20021204, end: 20030320
  9. DEXAMETHASONE 4MG TAB [Concomitant]
     Route: 042
     Dates: start: 20021204, end: 20021204
  10. DEXAMETHASONE 4MG TAB [Concomitant]
     Route: 048
     Dates: start: 20021204, end: 20021205

REACTIONS (2)
  - HYPERGLYCAEMIA [None]
  - METABOLIC ACIDOSIS [None]
